FAERS Safety Report 16176514 (Version 1)
Quarter: 2019Q2

REPORT INFORMATION
  Report Type: Spontaneous
  Country: GB (occurrence: GB)
  Receive Date: 20190409
  Receipt Date: 20190409
  Transmission Date: 20190711
  Serious: Yes (Other)
  Sender: FDA-Public Use
  Company Number: PHHY2019GB076046

PATIENT
  Age: 58 Year
  Sex: Female

DRUGS (12)
  1. LOPERAMIDE [Suspect]
     Active Substance: LOPERAMIDE
     Indication: DIARRHOEA
     Dosage: 2 MG, UNK
     Route: 048
  2. SODIUM CHLORIDE. [Suspect]
     Active Substance: SODIUM CHLORIDE
     Indication: MEDICATION DILUTION
     Dosage: 1 UNK, QW3 (WITH PERTUZUMAB)
     Route: 042
     Dates: start: 20181011
  3. SODIUM CHLORIDE. [Suspect]
     Active Substance: SODIUM CHLORIDE
     Dosage: 1 UNK, QW3 (WITH DOCETAXEL HOSPIRA)
     Route: 042
     Dates: start: 20181011
  4. SODIUM CHLORIDE. [Suspect]
     Active Substance: SODIUM CHLORIDE
     Dosage: 1 UNK, QW3 (WITH TRASTUZUMAB)
     Route: 042
     Dates: start: 20181011
  5. DOCETAXEL. [Suspect]
     Active Substance: DOCETAXEL
     Indication: BREAST CANCER
     Dosage: UNK (PREVIOUS CYCLE)
     Route: 065
  6. PERTUZUMAB. [Suspect]
     Active Substance: PERTUZUMAB
     Indication: BREAST CANCER
     Dosage: 420 MG, QW3
     Route: 042
     Dates: start: 20181011
  7. MAGNASPARTATE [Concomitant]
     Dosage: 2 UNK, QD (SACHETS)
     Route: 048
     Dates: start: 20181010
  8. DOCETAXEL. [Suspect]
     Active Substance: DOCETAXEL
     Dosage: 63 MG, QW (DOSE REDUCED THAN PREVIOUS CYCLE)
     Route: 042
     Dates: start: 20181011
  9. TRASTUZUMAB. [Suspect]
     Active Substance: TRASTUZUMAB
     Indication: BREAST CANCER
     Dosage: 425 MG, QW3
     Route: 042
     Dates: start: 20181011
  10. WATER FOR INJECTION [Suspect]
     Active Substance: WATER
     Indication: MEDICATION DILUTION
     Dosage: 1 UNK, QW3
     Route: 042
     Dates: start: 20181011
  11. COLESTIPOL [Suspect]
     Active Substance: COLESTIPOL
     Indication: DIARRHOEA
     Dosage: 2 UNK, QD (SACHETS)
     Route: 065
     Dates: start: 20181011
  12. MAGNASPARTATE [Concomitant]
     Indication: BLOOD MAGNESIUM DECREASED
     Dosage: 2 UNK, QD (SACHETS)
     Route: 048
     Dates: start: 20181006

REACTIONS (3)
  - Malaise [Recovered/Resolved]
  - Body temperature decreased [Recovered/Resolved]
  - Blood magnesium decreased [Recovered/Resolved]

NARRATIVE: CASE EVENT DATE: 20181031
